FAERS Safety Report 8181955-9 (Version None)
Quarter: 2012Q1

REPORT INFORMATION
  Report Type: 
  Country: None (occurrence: None)
  Receive Date: 20120302
  Receipt Date: 20120220
  Transmission Date: 20120608
  Serious: Yes (Other)
  Sender: FDA-Public Use
  Company Number: PHHY2012JP013741

PATIENT

DRUGS (3)
  1. NEORAL [Suspect]
     Dosage: 100 MG
     Route: 048
  2. NEORAL [Suspect]
     Dosage: 150 MG
     Route: 048
  3. NEORAL [Suspect]
     Dosage: 200 MG
     Route: 048

REACTIONS (6)
  - BLOOD PRESSURE INCREASED [None]
  - PHOTOPSIA [None]
  - HEADACHE [None]
  - DEPRESSION [None]
  - HYPERTENSIVE ENCEPHALOPATHY [None]
  - VISUAL IMPAIRMENT [None]
